FAERS Safety Report 7128669-1 (Version None)
Quarter: 2010Q4

REPORT INFORMATION
  Report Type: 
  Country: None (occurrence: None)
  Receive Date: 20101130
  Receipt Date: 20101118
  Transmission Date: 20110411
  Serious: Yes (Other)
  Sender: FDA-Public Use
  Company Number: GB-TEVA-256671ISR

PATIENT
  Age: 24 Year
  Sex: Female

DRUGS (1)
  1. MESALAZINE [Suspect]
     Indication: COLITIS ULCERATIVE

REACTIONS (2)
  - EOSINOPHILIA [None]
  - WEGENER'S GRANULOMATOSIS [None]
